FAERS Safety Report 5470662-9 (Version None)
Quarter: 2007Q3

REPORT INFORMATION
  Report Type: 
  Country: None (occurrence: None)
  Receive Date: 20070925
  Receipt Date: 20070911
  Transmission Date: 20080115
  Serious: Yes (Other)
  Sender: FDA-Public Use
  Company Number: 6037968

PATIENT
  Age: 76 Year
  Sex: Male

DRUGS (5)
  1. BISOPROLOL FUMARATE [Suspect]
     Indication: ATRIAL FIBRILLATION
     Dosage: 2,500 (2,5 ,1 IN 1 D)
     Route: 048
     Dates: start: 20070612, end: 20070716
  2. ASPIRIN [Concomitant]
  3. DIGOXIN [Concomitant]
  4. ESOMEPRAZOLE MAGNESIUM [Concomitant]
  5. RAMIPRIL [Concomitant]

REACTIONS (1)
  - HEPATITIS [None]
